FAERS Safety Report 5331091-1 (Version None)
Quarter: 2007Q2

REPORT INFORMATION
  Report Type: 
  Country: None (occurrence: None)
  Receive Date: 20070522
  Receipt Date: 20070515
  Transmission Date: 20071010
  Serious: Yes (Other)
  Sender: FDA-Public Use
  Company Number: US-BRISTOL-MYERS SQUIBB COMPANY-13785662

PATIENT
  Age: 67 Year
  Sex: Female

DRUGS (15)
  1. TEQUIN [Suspect]
     Route: 048
     Dates: start: 20041223
  2. LISINOPRIL [Concomitant]
     Route: 048
  3. BENADRYL [Concomitant]
     Route: 048
  4. ACTOS [Concomitant]
     Route: 048
  5. AMARYL [Concomitant]
     Route: 048
  6. AMBIEN [Concomitant]
     Route: 048
  7. ASPIRIN [Concomitant]
     Route: 048
  8. CRESTOR [Concomitant]
     Route: 048
  9. CELEBREX [Concomitant]
     Route: 048
  10. NITROSTAT [Concomitant]
     Route: 060
  11. TOPROL-XL [Concomitant]
     Route: 048
  12. MAXZIDE [Concomitant]
     Route: 048
  13. NORVASC [Concomitant]
     Route: 048
  14. PREMARIN [Concomitant]
     Route: 048
  15. ELMIRON [Concomitant]
     Route: 048

REACTIONS (1)
  - HYPERGLYCAEMIA [None]
